FAERS Safety Report 6077419-9 (Version None)
Quarter: 2009Q1

REPORT INFORMATION
  Report Type: 
  Country: None (occurrence: None)
  Receive Date: 20090213
  Receipt Date: 20090205
  Transmission Date: 20090719
  Serious: Yes (Other)
  Sender: FDA-Public Use
  Company Number: GB-JNJFOC-20081202587

PATIENT
  Sex: Female

DRUGS (5)
  1. REMICADE [Suspect]
     Dosage: TOTAL OF 3 INFUSIONS
     Route: 042
  2. REMICADE [Suspect]
     Dosage: RECEIVED TWO INFUSIONS THE WEEK OF 02-JUL-2008
     Route: 042
  3. REMICADE [Suspect]
     Indication: CROHN'S DISEASE
     Route: 042
  4. AZATHIOPRINE [Concomitant]
     Indication: DRUG USE FOR UNKNOWN INDICATION
     Dosage: LONG TERM USE
  5. AUGMENTIN '125' [Concomitant]

REACTIONS (5)
  - BLOOD CREATINE PHOSPHOKINASE MB INCREASED [None]
  - CARDIO-RESPIRATORY ARREST [None]
  - CROHN'S DISEASE [None]
  - DRUG INEFFECTIVE [None]
  - LEFT VENTRICULAR FAILURE [None]
